FAERS Safety Report 23230084 (Version 1)
Quarter: 2023Q4

REPORT INFORMATION
  Report Type: Spontaneous
  Country: US (occurrence: US)
  Receive Date: 20231127
  Receipt Date: 20231127
  Transmission Date: 20240110
  Serious: Yes (Hospitalization, Other)
  Sender: FDA-Public Use
  Company Number: US-LUPIN PHARMACEUTICALS INC.-2023-10434

PATIENT
  Age: 8 Decade
  Sex: Male

DRUGS (6)
  1. VANCOMYCIN [Suspect]
     Active Substance: VANCOMYCIN
     Indication: Osteomyelitis
     Dosage: UNK
     Route: 065
  2. VANCOMYCIN [Suspect]
     Active Substance: VANCOMYCIN
     Indication: Sepsis
  3. METRONIDAZOLE [Suspect]
     Active Substance: METRONIDAZOLE
     Indication: Osteomyelitis
     Dosage: UNK
     Route: 065
  4. METRONIDAZOLE [Suspect]
     Active Substance: METRONIDAZOLE
     Indication: Sepsis
  5. CEFTRIAXONE [Suspect]
     Active Substance: CEFTRIAXONE\CEFTRIAXONE SODIUM
     Indication: Osteomyelitis
     Dosage: UNK, A SIX-WEEK OUTPATIENT COURSE OF INTERMITTENTLY DOSED CEFTRIAXONE
     Route: 065
  6. CEFEPIME [Suspect]
     Active Substance: CEFEPIME HYDROCHLORIDE
     Indication: Antibiotic therapy
     Dosage: UNK
     Route: 065

REACTIONS (3)
  - Drug reaction with eosinophilia and systemic symptoms [Recovered/Resolved]
  - Drug ineffective for unapproved indication [Unknown]
  - Off label use [Unknown]
